FAERS Safety Report 23765954 (Version 1)
Quarter: 2024Q2

REPORT INFORMATION
  Report Type: Spontaneous
  Country: CN (occurrence: CN)
  Receive Date: 20240421
  Receipt Date: 20240421
  Transmission Date: 20240716
  Serious: Yes (Life-Threatening, Hospitalization)
  Sender: FDA-Public Use
  Company Number: CN-BEIGENE-BGN-2024-005533

PATIENT
  Age: 61 Year
  Sex: Male

DRUGS (5)
  1. TISLELIZUMAB [Suspect]
     Active Substance: TISLELIZUMAB
     Indication: Lung squamous cell carcinoma metastatic
     Dosage: UNK
     Route: 065
     Dates: start: 20220630
  2. PACLITAXEL [Suspect]
     Active Substance: PACLITAXEL
     Indication: Lung squamous cell carcinoma metastatic
     Dosage: UNK
     Route: 065
     Dates: start: 20220630
  3. ZOLEDRONIC ACID [Suspect]
     Active Substance: ZOLEDRONIC ACID
     Indication: Lung squamous cell carcinoma metastatic
     Dosage: UNK
     Route: 065
     Dates: start: 20220630
  4. CARBOPLATIN [Suspect]
     Active Substance: CARBOPLATIN
     Indication: Lung squamous cell carcinoma metastatic
     Dosage: UNK
     Route: 065
     Dates: start: 20220630
  5. ENDOSTATIN [Suspect]
     Active Substance: ENDOSTATIN
     Indication: Lung squamous cell carcinoma metastatic
     Dosage: UNK
     Route: 065
     Dates: start: 20220630

REACTIONS (3)
  - Purpura [Recovered/Resolved]
  - Immune-mediated lung disease [Not Recovered/Not Resolved]
  - Pneumonia [Not Recovered/Not Resolved]

NARRATIVE: CASE EVENT DATE: 20220711
